FAERS Safety Report 9540937 (Version 2)
Quarter: 2013Q4

REPORT INFORMATION
  Report Type: Spontaneous
  Country: FI (occurrence: FI)
  Receive Date: 20130921
  Receipt Date: 20131011
  Transmission Date: 20140711
  Serious: Yes (Other)
  Sender: FDA-Public Use
  Company Number: FI-ROCHE-1276583

PATIENT
  Sex: 0

DRUGS (2)
  1. VESANOID [Suspect]
     Indication: ACUTE MYELOID LEUKAEMIA
     Route: 048
     Dates: start: 20130702, end: 20130805
  2. SUTENT [Suspect]
     Indication: ACUTE MYELOID LEUKAEMIA
     Route: 065
     Dates: start: 20130709, end: 20130805

REACTIONS (4)
  - Erythropoiesis abnormal [Unknown]
  - Asthenia [Unknown]
  - Cardiac disorder [Unknown]
  - Angina pectoris [Unknown]
